FAERS Safety Report 19159058 (Version 1)
Quarter: 2021Q2

REPORT INFORMATION
  Report Type: Spontaneous
  Country: US (occurrence: US)
  Receive Date: 20210420
  Receipt Date: 20210420
  Transmission Date: 20210717
  Serious: No
  Sender: FDA-Public Use
  Company Number: US-BAXTER-2021BAX007647

PATIENT
  Age: 73 Year
  Sex: Male

DRUGS (8)
  1. REGULAR HUMAN INSULIN [Suspect]
     Active Substance: INSULIN HUMAN
     Dosage: 2 UNITS BOLUS
     Route: 042
     Dates: start: 20210404
  2. REGULAR HUMAN INSULIN [Suspect]
     Active Substance: INSULIN HUMAN
     Dosage: 6 UNITS PER HOUR
     Route: 042
     Dates: start: 20210404
  3. REGULAR HUMAN INSULIN [Suspect]
     Active Substance: INSULIN HUMAN
     Indication: BLOOD GLUCOSE INCREASED
     Dosage: 2.5 UNITS PER HOUR WITH 2.5 UNITS BOLUS
     Route: 042
     Dates: start: 20210404
  4. REGULAR HUMAN INSULIN [Suspect]
     Active Substance: INSULIN HUMAN
     Dosage: 5 UNITS PER HOUR WITH 2 UNITS BOLUS
     Route: 042
     Dates: start: 20210404
  5. REGULAR HUMAN INSULIN [Suspect]
     Active Substance: INSULIN HUMAN
     Dosage: 11 UNITS PER HOUR
     Route: 042
     Dates: start: 20210404
  6. REGULAR HUMAN INSULIN [Suspect]
     Active Substance: INSULIN HUMAN
     Dosage: 13 UNITS PER HOUR
     Route: 042
     Dates: start: 20210404, end: 20210404
  7. REGULAR HUMAN INSULIN [Suspect]
     Active Substance: INSULIN HUMAN
     Dosage: MYXREDLIN BAG OF UNKNOWN LOT NUMBER, 13 UNITS PER HOUR
     Route: 042
     Dates: start: 20210404
  8. REGULAR HUMAN INSULIN [Suspect]
     Active Substance: INSULIN HUMAN
     Dosage: 8 UNITS PER HOUR WITH 2 UNITS BOLUS
     Route: 042
     Dates: start: 20210404

REACTIONS (2)
  - Therapeutic product effect decreased [Recovered/Resolved]
  - Blood glucose increased [Recovered/Resolved]

NARRATIVE: CASE EVENT DATE: 20210404
